FAERS Safety Report 7973008-7 (Version None)
Quarter: 2011Q4

REPORT INFORMATION
  Report Type: 
  Country: None (occurrence: None)
  Receive Date: 20111213
  Receipt Date: 20111205
  Transmission Date: 20120403
  Serious: Yes (Other)
  Sender: FDA-Public Use
  Company Number: KR-BRISTOL-MYERS SQUIBB COMPANY-16285579

PATIENT
  Age: 52 Year
  Sex: Male

DRUGS (4)
  1. CETUXIMAB [Suspect]
     Indication: COLON CANCER
  2. OXALIPLATIN [Suspect]
     Indication: COLON CANCER
     Dosage: INTERRUPTED AND RESTARTED
  3. FLUOROURACIL [Suspect]
     Indication: COLON CANCER
     Dosage: (400 MG/M2 BOLUS ON DAYS I AND 2400 MG/RN2 CONTINUOUS INFUSION)] FOR 46 H EVERY 2 WEEKS.
     Route: 040
  4. LEUCOVORIN CALCIUM [Suspect]
     Indication: COLON CANCER

REACTIONS (1)
  - PNEUMATOSIS INTESTINALIS [None]
